FAERS Safety Report 4907064-7 (Version None)
Quarter: 2006Q1

REPORT INFORMATION
  Report Type: 
  Country: None (occurrence: None)
  Receive Date: 20060206
  Receipt Date: 20060125
  Transmission Date: 20060701
  Serious: Yes (Death)
  Sender: FDA-Public Use
  Company Number: USA-2006-0023277

PATIENT
  Age: 49 Year
  Sex: Male

DRUGS (10)
  1. MORPHINE SULFATE [Suspect]
     Indication: PAIN
     Dosage: 15 MG, TID; SEE IMAGE
     Dates: start: 20051223
  2. MORPHINE SULFATE [Suspect]
     Indication: PAIN
     Dosage: 15 MG, TID; SEE IMAGE
     Dates: start: 20051229
  3. ALBUTEROL [Concomitant]
  4. ATROVENT [Concomitant]
  5. ZOLOFT [Concomitant]
  6. SEROQUEL [Concomitant]
  7. EFFEXOR [Concomitant]
  8. DEPAKOTE [Concomitant]
  9. ADVAIR DISKUS (SALMETEROL XINAFOATE, FLUTICASONE PROPIONATE) [Concomitant]
  10. ASPIRIN [Concomitant]

REACTIONS (1)
  - MYOCARDIAL INFARCTION [None]
